FAERS Safety Report 15055231 (Version 1)
Quarter: 2018Q2

REPORT INFORMATION
  Report Type: Spontaneous
  Country: US (occurrence: US)
  Receive Date: 20180622
  Receipt Date: 20180622
  Transmission Date: 20180711
  Serious: Yes (Disabling, Other)
  Sender: FDA-Public Use
  Company Number: US-OTSUKA-2018_015674

PATIENT
  Sex: Female

DRUGS (3)
  1. ABILIFY [Suspect]
     Active Substance: ARIPIPRAZOLE
     Indication: POST-TRAUMATIC STRESS DISORDER
  2. ABILIFY [Suspect]
     Active Substance: ARIPIPRAZOLE
     Indication: BIPOLAR DISORDER
     Dosage: 2 MG, QD
     Route: 065
     Dates: start: 2014, end: 2017
  3. ABILIFY [Suspect]
     Active Substance: ARIPIPRAZOLE
     Indication: ANXIETY

REACTIONS (18)
  - Condition aggravated [Unknown]
  - Anxiety [Unknown]
  - Injury [Unknown]
  - Suicide attempt [Unknown]
  - Economic problem [Unknown]
  - Unintended pregnancy [Unknown]
  - Suicidal ideation [Unknown]
  - Eating disorder [Unknown]
  - Sexual dysfunction [Unknown]
  - Emotional distress [Unknown]
  - Gambling disorder [Unknown]
  - Product use in unapproved indication [Unknown]
  - Disability [Unknown]
  - Compulsive sexual behaviour [Unknown]
  - Loss of employment [Unknown]
  - Obsessive-compulsive disorder [Unknown]
  - Anhedonia [Unknown]
  - Pain [Unknown]
